FAERS Safety Report 5755625-8 (Version None)
Quarter: 2008Q2

REPORT INFORMATION
  Report Type: 
  Country: None (occurrence: None)
  Receive Date: 20080602
  Receipt Date: 20080521
  Transmission Date: 20081010
  Serious: Yes (Hospitalization)
  Sender: FDA-Public Use
  Company Number: FR-MERCK-0805FRA00073

PATIENT
  Age: 36 Year
  Sex: Female

DRUGS (2)
  1. STROMECTOL [Suspect]
     Indication: PROPHYLAXIS
     Route: 048
     Dates: start: 20080315, end: 20080317
  2. ATOVAQUONE AND CHLORGUANIDE HYDROCHLORIDE [Suspect]
     Indication: PROPHYLAXIS
     Route: 048

REACTIONS (4)
  - ASTHENIA [None]
  - EPISTAXIS [None]
  - PANCYTOPENIA [None]
  - VOMITING [None]
